FAERS Safety Report 6115858-8 (Version None)
Quarter: 2009Q1

REPORT INFORMATION
  Report Type: 
  Country: None (occurrence: None)
  Receive Date: 20090311
  Receipt Date: 20090226
  Transmission Date: 20090719
  Serious: Yes (Hospitalization)
  Sender: FDA-Public Use
  Company Number: DSU-2009-00497

PATIENT
  Age: 53 Year
  Sex: Female

DRUGS (6)
  1. WELCHOL [Suspect]
     Indication: HYPERLIPIDAEMIA
     Dosage: 3750 MG (1875 MG, BID), PER ORAL
     Route: 048
     Dates: start: 20090101
  2. SYNTHROID [Suspect]
     Indication: HYPOTHYROIDISM
     Dosage: PER ORAL
     Route: 048
     Dates: start: 20090101
  3. LEVOTHYROID     (LEVOTHYROXINE SODIUM) (LEVOTHYROXINE SODIUM) [Concomitant]
  4. NEXIUM    (ESOMEPRAOZOLE MAGNESIUM) (ESOMEPRAZOLE MANGESIUM) [Concomitant]
  5. MULTIVITAMIN (ERGOCALCIFEROL, ASCORBIC ACID, FOLIC ACID, THIAMINE HYDR [Concomitant]
  6. CALCIUM      (CALCIUM) [Concomitant]

REACTIONS (7)
  - ASTHENIA [None]
  - BLOOD POTASSIUM DECREASED [None]
  - CHEST DISCOMFORT [None]
  - DRUG INTERACTION [None]
  - DYSPNOEA [None]
  - PALPITATIONS [None]
  - TREATMENT NONCOMPLIANCE [None]
